FAERS Safety Report 17224415 (Version 1)
Quarter: 2020Q1

REPORT INFORMATION
  Report Type: Spontaneous
  Country: US (occurrence: US)
  Receive Date: 20191231
  Receipt Date: 20191231
  Transmission Date: 20200409
  Serious: No
  Sender: FDA-Public Use
  Company Number: None

PATIENT
  Age: 22 Year
  Sex: Male

DRUGS (2)
  1. SOOTHE XP [Suspect]
     Active Substance: LIGHT MINERAL OIL\MINERAL OIL
     Indication: DRY EYE
     Dosage: ?          QUANTITY:1 DROP(S);?
     Route: 047
     Dates: start: 20191216
  2. EAR WAX REMOVAL AID [Suspect]
     Active Substance: CARBAMIDE PEROXIDE
     Indication: CERUMEN REMOVAL
     Dosage: ?          QUANTITY:1 DROP(S);?
     Route: 047
     Dates: start: 20191229, end: 20191229

REACTIONS (4)
  - Eye irritation [None]
  - Wrong product administered [None]
  - Product appearance confusion [None]
  - Incorrect route of product administration [None]

NARRATIVE: CASE EVENT DATE: 20191230
